FAERS Safety Report 4820331-0 (Version None)
Quarter: 2005Q4

REPORT INFORMATION
  Report Type: 
  Country: None (occurrence: None)
  Receive Date: 20051014
  Receipt Date: 20050801
  Transmission Date: 20060501
  Serious: No
  Sender: FDA-Public Use
  Company Number: 2005SP002153

PATIENT
  Age: 62 Year
  Sex: Male

DRUGS (3)
  1. LUNESTA [Suspect]
     Dosage: 1 MG;ORAL    : 3 MG; ORAL
     Route: 048
     Dates: start: 20050601, end: 20050101
  2. LUNESTA [Suspect]
     Dosage: 1 MG;ORAL    : 3 MG; ORAL
     Route: 048
     Dates: start: 20050101
  3. REMERON [Concomitant]

REACTIONS (2)
  - DIARRHOEA [None]
  - HEADACHE [None]
